FAERS Safety Report 12650031 (Version 2)
Quarter: 2016Q3

REPORT INFORMATION
  Report Type: Spontaneous
  Country: GB (occurrence: FR)
  Receive Date: 20160813
  Receipt Date: 20160930
  Transmission Date: 20161109
  Serious: Yes (Hospitalization)
  Sender: FDA-Public Use
  Company Number: FR-ACCORD-043155

PATIENT
  Age: 60 Year
  Sex: Male
  Weight: 82 kg

DRUGS (12)
  1. FLUOROURACIL ACCORD [Suspect]
     Active Substance: FLUOROURACIL
     Indication: ADENOCARCINOMA PANCREAS
     Dosage: RECEIVED FOR ONLY 2 HOURS WHEREAS IT WAS INITIALLY PLANNED FOR 48 HOURS.??RECEIVED AS FOLFOX
     Route: 042
     Dates: start: 20160531
  2. OXALIPLATIN. [Concomitant]
     Active Substance: OXALIPLATIN
     Indication: ADENOCARCINOMA PANCREAS
     Dosage: RECEIVED AS FOLFOX PROTOCOL, 100% OF THE THEORETICAL DOSE
     Dates: start: 20160531
  3. HUMALOG [Concomitant]
     Active Substance: INSULIN LISPRO
     Dosage: RAPID, DEPENDING ON BLOOD GLUCOSE LEVEL
  4. INEGY [Concomitant]
     Active Substance: EZETIMIBE\SIMVASTATIN
     Dosage: STRENGTH 10 MG/20 MG, 1 DAY OUT OF 3 DAY
  5. COVERAM [Concomitant]
     Active Substance: AMLODIPINE\PERINDOPRIL
     Dosage: STRENGTH 5 MG/5MG, IN THE MORNING
  6. ESCITALOPRAM [Concomitant]
     Active Substance: ESCITALOPRAM OXALATE
     Dosage: STRENGTH 10 MG
  7. FOLINIC ACID [Concomitant]
     Active Substance: LEUCOVORIN
     Indication: ADENOCARCINOMA PANCREAS
     Dosage: RECEIVED AS FOLFOX PROTOCOL, 100% OF THE THEORETICAL DOSE
     Dates: start: 20160531
  8. TRAMADOL. [Concomitant]
     Active Substance: TRAMADOL
     Dosage: STRENGTH 100?EXTENDED RELEASE, ONCE IN THE MORNING AND ONCE IN THE EVENING.
  9. METFORMIN [Concomitant]
     Active Substance: METFORMIN HYDROCHLORIDE
     Dosage: STRENGTH 1000, ONCE IN THE MORNING AND ONCE IN THE EVENING
  10. ESOMEPRAZOLE/ESOMEPRAZOLE MAGNESIUM/ESOMEPRAZOLE SODIUM [Concomitant]
     Dosage: 20 MG ONCE IN THE EVENING
  11. LANTUS [Concomitant]
     Active Substance: INSULIN GLARGINE
     Dosage: DOSE: 40 IU IN THE EVENING (BLOOD GLUCOSE ADAPTATION).
  12. EMEND [Concomitant]
     Active Substance: APREPITANT
     Dosage: DOSE: 125 MG ON DAY 1 OF CHEMOTHERAPY AND 80 MG ON DAY2 AND DAY 3.

REACTIONS (3)
  - Hospitalisation [Unknown]
  - Device use error [Unknown]
  - Chemotherapeutic drug level increased [Recovered/Resolved]

NARRATIVE: CASE EVENT DATE: 20160531
